FAERS Safety Report 5726559-X (Version None)
Quarter: 2008Q2

REPORT INFORMATION
  Report Type: 
  Country: None (occurrence: None)
  Receive Date: 20080502
  Receipt Date: 20080418
  Transmission Date: 20081010
  Serious: Yes (Death)
  Sender: FDA-Public Use
  Company Number: CH-GENENTECH-259935

PATIENT
  Age: 74 Year
  Sex: Female

DRUGS (7)
  1. HERCEPTIN [Suspect]
     Indication: BREAST CANCER IN SITU
     Dosage: 380 MG, UNK
     Route: 040
     Dates: start: 20080318
  2. TAXOL [Suspect]
     Indication: BREAST CANCER IN SITU
     Dosage: 30 UNK, UNK
     Route: 040
     Dates: start: 20080319, end: 20080319
  3. DEXAMETHASONE [Suspect]
     Indication: BREAST CANCER IN SITU
     Dosage: 20 MG, BID
     Route: 048
     Dates: start: 20080318, end: 20080319
  4. PREDNISONE [Suspect]
     Indication: PEMPHIGOID
     Dosage: 7.5 MG, QD
     Route: 048
     Dates: start: 20080201
  5. IMUREK [Concomitant]
     Indication: DRUG USE FOR UNKNOWN INDICATION
     Dates: start: 20080201, end: 20080324
  6. TAVEGYL [Concomitant]
     Indication: DRUG USE FOR UNKNOWN INDICATION
     Dates: start: 20080318, end: 20080319
  7. ZOFRAN [Concomitant]
     Indication: DRUG USE FOR UNKNOWN INDICATION
     Dosage: UNK, UNK
     Dates: start: 20080319, end: 20080319

REACTIONS (1)
  - INTRAVENTRICULAR HAEMORRHAGE [None]
